FAERS Safety Report 20537386 (Version 1)
Quarter: 2022Q1

REPORT INFORMATION
  Report Type: Other
  Country: CA (occurrence: CA)
  Receive Date: 20220302
  Receipt Date: 20220302
  Transmission Date: 20220423
  Serious: Yes (Other)
  Sender: FDA-Public Use
  Company Number: CA-CELLTRION INC.-2022CA002177

PATIENT

DRUGS (3)
  1. RITUXIMAB [Suspect]
     Active Substance: RITUXIMAB
     Indication: Rheumatoid arthritis
     Dosage: 1000 MG
     Route: 042
  2. IBUPROFEN [Concomitant]
     Active Substance: IBUPROFEN
     Indication: Rheumatoid arthritis
     Dosage: 1 DF, AS REQUIRED
  3. TYLENOL [Concomitant]
     Active Substance: ACETAMINOPHEN
     Dosage: AS REQUIRED

REACTIONS (5)
  - Bladder disorder [Recovered/Resolved]
  - Chronic obstructive pulmonary disease [Recovered/Resolved]
  - Exposure to SARS-CoV-2 [Recovered/Resolved]
  - Impaired healing [Recovered/Resolved]
  - Cellulitis [Recovered/Resolved]
